FAERS Safety Report 26061765 (Version 1)
Quarter: 2025Q4

REPORT INFORMATION
  Report Type: Report from Study
  Country: EU (occurrence: EU)
  Receive Date: 20251118
  Receipt Date: 20251118
  Transmission Date: 20260117
  Serious: Yes (Death)
  Sender: ABBVIE
  Company Number: EU-ABBVIE-6553530

PATIENT
  Age: 75 Year
  Sex: Male

DRUGS (2)
  1. CARBIDOPA\LEVODOPA [Suspect]
     Active Substance: CARBIDOPA\LEVODOPA
     Indication: Parkinson^s disease
     Route: 050
  2. CARBIDOPA\LEVODOPA [Suspect]
     Active Substance: CARBIDOPA\LEVODOPA

REACTIONS (4)
  - Death [Fatal]
  - Hip fracture [Recovered/Resolved]
  - Dementia [Unknown]
  - Fall [Unknown]

NARRATIVE: CASE EVENT DATE: 20241201
